FAERS Safety Report 10310697 (Version 1)
Quarter: 2014Q3

REPORT INFORMATION
  Report Type: Spontaneous
  Country: US (occurrence: None)
  Receive Date: 20140716
  Receipt Date: 20140716
  Transmission Date: 20150326
  Serious: Yes (Life-Threatening)
  Sender: FDA-Public Use
  Company Number: None

PATIENT
  Age: 55 Year
  Sex: Female
  Weight: 95.26 kg

DRUGS (1)
  1. CYMBALTA [Suspect]
     Active Substance: DULOXETINE HYDROCHLORIDE
     Indication: POST-TRAUMATIC STRESS DISORDER
     Dosage: TAKEN BY MOUTH
     Dates: start: 20140414, end: 20140706

REACTIONS (3)
  - Suicidal ideation [None]
  - Homicidal ideation [None]
  - Agitation [None]

NARRATIVE: CASE EVENT DATE: 20140704
